FAERS Safety Report 18771250 (Version 1)
Quarter: 2021Q1

REPORT INFORMATION
  Report Type: Spontaneous
  Country: RO (occurrence: RO)
  Receive Date: 20210122
  Receipt Date: 20210122
  Transmission Date: 20210419
  Serious: Yes (Life-Threatening, Hospitalization, Other)
  Sender: FDA-Public Use
  Company Number: RO-TEVA-2021-RO-1871389

PATIENT
  Age: 66 Year
  Sex: Female

DRUGS (6)
  1. NEBIVOLOL. [Suspect]
     Active Substance: NEBIVOLOL
     Route: 048
  2. MIRTAZAPINE. [Suspect]
     Active Substance: MIRTAZAPINE
     Dosage: 30 MILLIGRAM DAILY; 30 MG/DAY
     Route: 065
     Dates: start: 201205
  3. LORAZEPAM. [Suspect]
     Active Substance: LORAZEPAM
     Route: 048
  4. BROMAZEPAM [Suspect]
     Active Substance: BROMAZEPAM
     Dosage: 3 MILLIGRAM DAILY;
     Route: 065
     Dates: start: 201205
  5. OLANZAPINE. [Suspect]
     Active Substance: OLANZAPINE
     Dosage: 15 MILLIGRAM DAILY; 15 MG/DAY
     Route: 065
     Dates: start: 201205
  6. ZOPICLONA [Suspect]
     Active Substance: ZOPICLONE
     Route: 048

REACTIONS (11)
  - Intentional self-injury [Unknown]
  - Insomnia [Unknown]
  - Anxiety [Unknown]
  - Feelings of worthlessness [Unknown]
  - Toxicity to various agents [Unknown]
  - Mood altered [Unknown]
  - Helplessness [Unknown]
  - Persecutory delusion [Unknown]
  - Affect lability [Unknown]
  - Crying [Unknown]
  - Drug intolerance [Unknown]
